FAERS Safety Report 5431274-6 (Version None)
Quarter: 2007Q3

REPORT INFORMATION
  Report Type: 
  Country: None (occurrence: None)
  Receive Date: 20070830
  Receipt Date: 20070827
  Transmission Date: 20080115
  Serious: Yes (Life-Threatening)
  Sender: FDA-Public Use
  Company Number: US-MERCK-0708USA05040

PATIENT
  Age: 81 Year
  Sex: Male

DRUGS (13)
  1. JANUVIA [Suspect]
     Indication: DIABETES MELLITUS
     Route: 048
     Dates: start: 20070101
  2. LANTUS [Concomitant]
     Route: 065
  3. AMARYL [Concomitant]
     Route: 065
  4. AGGRENOX [Concomitant]
     Route: 065
  5. LASIX [Concomitant]
     Route: 065
  6. POTASSIUM (UNSPECIFIED) [Concomitant]
     Route: 065
  7. LEXAPRO [Concomitant]
     Route: 065
  8. LIPITOR [Concomitant]
     Route: 065
  9. RISPERDAL [Concomitant]
     Route: 065
  10. LISINOPRIL [Concomitant]
     Route: 065
  11. METFORMIN [Concomitant]
     Route: 065
  12. [THERAPY UNSPECIFIED] [Concomitant]
     Route: 065
  13. BYETTA [Concomitant]
     Route: 065
     Dates: end: 20070101

REACTIONS (1)
  - DRUG INEFFECTIVE [None]
